FAERS Safety Report 18458395 (Version 1)
Quarter: 2020Q4

REPORT INFORMATION
  Report Type: Spontaneous
  Country: US (occurrence: US)
  Receive Date: 20201103
  Receipt Date: 20201103
  Transmission Date: 20210114
  Serious: No
  Sender: FDA-Public Use
  Company Number: None

PATIENT
  Sex: Female

DRUGS (2)
  1. IBUPROFEN. [Suspect]
     Active Substance: IBUPROFEN
  2. KESIMPTA [Suspect]
     Active Substance: OFATUMUMAB

REACTIONS (3)
  - Pruritus [None]
  - Urticaria [None]
  - Flushing [None]
